FAERS Safety Report 11622359 (Version 1)
Quarter: 2015Q4

REPORT INFORMATION
  Report Type: Spontaneous
  Country: US (occurrence: US)
  Receive Date: 20151013
  Receipt Date: 20151013
  Transmission Date: 20160304
  Serious: No
  Sender: FDA-Public Use
  Company Number: US-JNJFOC-20150413001

PATIENT
  Age: 4 Year
  Sex: Female
  Weight: 14.06 kg

DRUGS (4)
  1. CHILDRENS TYLENOL [Suspect]
     Active Substance: ACETAMINOPHEN
     Indication: ANALGESIC THERAPY
     Route: 048
     Dates: start: 20150411, end: 20150413
  2. ROCEFIN [Concomitant]
     Active Substance: CEFTRIAXONE SODIUM
     Indication: EAR INFECTION
     Route: 065
  3. CHILDRENS TYLENOL [Suspect]
     Active Substance: ACETAMINOPHEN
     Indication: PYREXIA
     Route: 048
     Dates: start: 20150411, end: 20150413
  4. ADVIL [Concomitant]
     Active Substance: IBUPROFEN
     Indication: PAIN MANAGEMENT
     Route: 065

REACTIONS (2)
  - Pruritus [Recovered/Resolved]
  - Urticaria [Recovered/Resolved]

NARRATIVE: CASE EVENT DATE: 20150413
